FAERS Safety Report 6325569-1 (Version None)
Quarter: 2009Q3

REPORT INFORMATION
  Report Type: 
  Country: None (occurrence: None)
  Receive Date: 20090824
  Receipt Date: 20070601
  Transmission Date: 20100115
  Serious: No
  Sender: FDA-Public Use
  Company Number: US-ABBOTT-08P-163-0463243-00

PATIENT
  Sex: Female

DRUGS (1)
  1. NIASPAN [Suspect]
     Indication: DRUG USE FOR UNKNOWN INDICATION
     Dosage: ON NIASPAN FOR TWO WEEKS

REACTIONS (4)
  - ACNE [None]
  - DRY SKIN [None]
  - ERYTHEMA [None]
  - HYPERHIDROSIS [None]
